FAERS Safety Report 5508569-0 (Version None)
Quarter: 2007Q4

REPORT INFORMATION
  Report Type: 
  Country: None (occurrence: None)
  Receive Date: 20071107
  Receipt Date: 20071029
  Transmission Date: 20080405
  Serious: Yes (Other)
  Sender: FDA-Public Use
  Company Number: US-BAYER-200713364BWH

PATIENT
  Age: 68 Year
  Sex: Male

DRUGS (11)
  1. NEXAVAR [Suspect]
     Indication: HEPATIC NEOPLASM MALIGNANT
     Dosage: TOTAL DAILY DOSE: 400 MG  UNIT DOSE: 200 MG
     Route: 048
     Dates: start: 20071001
  2. NEXAVAR [Suspect]
     Dosage: TOTAL DAILY DOSE: 800 MG  UNIT DOSE: 200 MG
     Route: 048
     Dates: start: 20070901, end: 20070917
  3. SYNTHROID [Concomitant]
     Dosage: TOTAL DAILY DOSE: 0.125 MG
     Route: 048
  4. LIPITOR [Concomitant]
     Dosage: TOTAL DAILY DOSE: 20 MG
     Route: 048
  5. ASCORBIC ACID [Concomitant]
     Dosage: TOTAL DAILY DOSE: 1000 MG
     Route: 048
  6. ZANTAC [Concomitant]
     Dosage: TOTAL DAILY DOSE: 150 MG
     Route: 048
  7. GLUCOSAMIN CHONDROITIN [Concomitant]
     Route: 048
  8. ASPIRIN [Concomitant]
  9. MEN'S HEALTH VITAMINS/MINERALS [Concomitant]
  10. TEMAZEPAM [Concomitant]
     Route: 048
  11. ATIVAN [Concomitant]
     Indication: NAUSEA
     Route: 048

REACTIONS (12)
  - ABDOMINAL PAIN [None]
  - DECREASED APPETITE [None]
  - DYSGEUSIA [None]
  - DYSPHONIA [None]
  - ERYTHEMA [None]
  - FATIGUE [None]
  - FREQUENT BOWEL MOVEMENTS [None]
  - ORAL PAIN [None]
  - PRURITUS [None]
  - RASH [None]
  - SKIN LESION [None]
  - TESTICULAR SWELLING [None]
